FAERS Safety Report 6911943-9 (Version None)
Quarter: 2010Q3

REPORT INFORMATION
  Report Type: 
  Country: None (occurrence: None)
  Receive Date: 20100806
  Receipt Date: 20070831
  Transmission Date: 20110219
  Serious: No
  Sender: FDA-Public Use
  Company Number: US-PFIZER INC-2007074854

PATIENT
  Sex: Female

DRUGS (7)
  1. DETROL LA [Suspect]
     Indication: INCONTINENCE
     Dates: start: 20070824
  2. DRUG, UNSPECIFIED [Concomitant]
  3. ACETYLSALICYLIC ACID SRT [Concomitant]
  4. METAMIZOLE [Concomitant]
  5. CENTRUM [Concomitant]
  6. DOCUSATE SODIUM [Concomitant]
  7. CALCIUM [Concomitant]

REACTIONS (1)
  - FLATULENCE [None]
